FAERS Safety Report 4440979-5 (Version None)
Quarter: 2004Q3

REPORT INFORMATION
  Report Type: 
  Country: None (occurrence: None)
  Receive Date: 20040728
  Receipt Date: 20040416
  Transmission Date: 20050211
  Serious: No
  Sender: FDA-Public Use
  Company Number: USA040465196

PATIENT
  Age: 18 Year
  Sex: Male

DRUGS (2)
  1. STRATTERA [Suspect]
     Indication: ATTENTION DEFICIT/HYPERACTIVITY DISORDER
     Dates: start: 20040409
  2. TRILEPTAL [Concomitant]

REACTIONS (3)
  - INSOMNIA [None]
  - STOMACH DISCOMFORT [None]
  - STRESS SYMPTOMS [None]
